FAERS Safety Report 25330440 (Version 1)
Quarter: 2025Q2

REPORT INFORMATION
  Report Type: Spontaneous
  Country: AU (occurrence: AU)
  Receive Date: 20250519
  Receipt Date: 20250519
  Transmission Date: 20250716
  Serious: Yes (Life-Threatening, Hospitalization)
  Sender: MYLAN
  Company Number: AU-MYLANLABS-2025M1039774

PATIENT
  Age: 88 Year
  Sex: Male

DRUGS (5)
  1. EPINEPHRINE [Suspect]
     Active Substance: EPINEPHRINE
     Indication: Angioedema
  2. RAMIPRIL [Suspect]
     Active Substance: RAMIPRIL
     Indication: Hypertension
     Dosage: 10 MILLIGRAM, QD
  3. EPINEPHRINE [Suspect]
     Active Substance: EPINEPHRINE
     Indication: Angioedema
  4. DEXAMETHASONE [Suspect]
     Active Substance: DEXAMETHASONE
     Indication: Angioedema
  5. LEVOSIMENDAN [Concomitant]
     Active Substance: LEVOSIMENDAN
     Indication: Stress cardiomyopathy

REACTIONS (6)
  - Angioedema [Recovered/Resolved]
  - Stress cardiomyopathy [Recovered/Resolved]
  - Respiratory arrest [Unknown]
  - Negative pressure pulmonary oedema [Unknown]
  - Cardiac arrest [Recovered/Resolved]
  - Left ventricular failure [Recovered/Resolved]
